FAERS Safety Report 6466343-5 (Version None)
Quarter: 2009Q4

REPORT INFORMATION
  Report Type: 
  Country: None (occurrence: None)
  Receive Date: 20091127
  Receipt Date: 20091113
  Transmission Date: 20100525
  Serious: Yes (Hospitalization)
  Sender: FDA-Public Use
  Company Number: 8054592

PATIENT
  Age: 71 Year
  Sex: Female
  Weight: 120.7 kg

DRUGS (14)
  1. CERTOLIZUMAB PEGOL [Suspect]
     Indication: RHEUMATOID ARTHRITIS
     Dosage: 400 MG 1/2W SC
     Route: 058
     Dates: start: 20091012
  2. METHOTREXATE [Concomitant]
  3. PREDNISONE [Concomitant]
  4. NAPROSYN [Concomitant]
  5. FOLIC ACID [Concomitant]
  6. DIFLUCAN [Concomitant]
  7. DARVOCET-N 100 [Concomitant]
  8. PRO-AIR [Concomitant]
  9. ADVAIR DISKUS 100/50 [Concomitant]
  10. ASCORBIC ACID [Concomitant]
  11. VITAMIN D [Concomitant]
  12. FLONASE [Concomitant]
  13. ALENDRONATE SODIUM [Concomitant]
  14. TRAVATAN [Concomitant]

REACTIONS (4)
  - FATIGUE [None]
  - HEADACHE [None]
  - NEUTROPHIL COUNT INCREASED [None]
  - URINARY TRACT INFECTION [None]
